FAERS Safety Report 4297296-6 (Version None)
Quarter: 2004Q1

REPORT INFORMATION
  Report Type: 
  Country: None (occurrence: None)
  Receive Date: 20040218
  Receipt Date: 20040211
  Transmission Date: 20041129
  Serious: Yes (Hospitalization)
  Sender: FDA-Public Use
  Company Number: 200410574FR

PATIENT
  Age: 79 Year
  Sex: Male

DRUGS (10)
  1. LOVENOX [Suspect]
     Route: 058
     Dates: end: 20040115
  2. TEGRETOL [Suspect]
     Route: 048
  3. PROZAC [Suspect]
     Route: 048
     Dates: end: 20040107
  4. MOPRAL [Suspect]
     Route: 048
  5. LIORESAL [Suspect]
     Route: 048
  6. FLUDEX 1.5 MG COMPRIME ENROBE LP [Suspect]
     Route: 048
  7. PRAXILENE [Concomitant]
  8. MOTILIUM [Concomitant]
  9. DIFFU K [Concomitant]
     Route: 048
  10. FORLAX [Concomitant]
     Route: 048

REACTIONS (1)
  - ECZEMA [None]
